FAERS Safety Report 14474982 (Version 1)
Quarter: 2018Q1

REPORT INFORMATION
  Report Type: Spontaneous
  Country: US (occurrence: US)
  Receive Date: 20180131
  Receipt Date: 20180131
  Transmission Date: 20180509
  Serious: Yes (Other)
  Sender: FDA-Public Use
  Company Number: None

PATIENT
  Sex: Male
  Weight: 85.5 kg

DRUGS (7)
  1. BLOOD PRESSURE MEDS [Concomitant]
  2. WARFARIN [Concomitant]
     Active Substance: WARFARIN
  3. VITAMINS NO VIT K [Concomitant]
  4. MAGNESIUM [Concomitant]
     Active Substance: MAGNESIUM
  5. FISH OIL [Concomitant]
     Active Substance: FISH OIL
  6. LEVAQUIN [Suspect]
     Active Substance: LEVOFLOXACIN
     Indication: TOOTHACHE
     Dosage: ?          QUANTITY:1 TABLET(S);?
     Route: 048
  7. VITAMIN D [Concomitant]
     Active Substance: CHOLECALCIFEROL

REACTIONS (3)
  - Blood pressure decreased [None]
  - Insomnia [None]
  - Neuralgia [None]

NARRATIVE: CASE EVENT DATE: 20171101
